FAERS Safety Report 18494818 (Version 1)
Quarter: 2020Q4

REPORT INFORMATION
  Report Type: Other
  Country: US (occurrence: US)
  Receive Date: 20201112
  Receipt Date: 20201112
  Transmission Date: 20210114
  Serious: Yes (Death, Other)
  Sender: FDA-Public Use
  Company Number: US-ROCHE-2709868

PATIENT

DRUGS (8)
  1. BELUMOSUDIL MESYLATE. [Suspect]
     Active Substance: BELUMOSUDIL MESYLATE
     Indication: IMMUNOSUPPRESSION
     Route: 065
  2. IXAZOMIB [Suspect]
     Active Substance: IXAZOMIB
     Indication: GRAFT VERSUS HOST DISEASE
     Dosage: ON DAYS 1, 8, AND 15 OF A 28-DAY CYCLE
     Route: 048
  3. RITUXIMAB. [Suspect]
     Active Substance: RITUXIMAB
     Indication: IMMUNOSUPPRESSION
     Route: 065
  4. IBRUTINIB [Suspect]
     Active Substance: IBRUTINIB
     Indication: IMMUNOSUPPRESSION
     Route: 065
  5. SIROLIMUS. [Suspect]
     Active Substance: SIROLIMUS
     Indication: IMMUNOSUPPRESSION
     Route: 065
  6. MYCOPHENOLATE MOFETIL. [Suspect]
     Active Substance: MYCOPHENOLATE MOFETIL
     Indication: IMMUNOSUPPRESSION
     Route: 065
  7. RUXOLITINIB [Suspect]
     Active Substance: RUXOLITINIB
     Indication: IMMUNOSUPPRESSION
     Route: 065
  8. PREDNISONE. [Suspect]
     Active Substance: PREDNISONE
     Indication: IMMUNOSUPPRESSION
     Route: 065

REACTIONS (31)
  - Constipation [Unknown]
  - Fatigue [Unknown]
  - Headache [Unknown]
  - Pneumonitis [Unknown]
  - Treatment failure [Unknown]
  - Asthenia [Unknown]
  - Wound infection [Unknown]
  - Influenza [Unknown]
  - Muscular weakness [Unknown]
  - Progressive multifocal leukoencephalopathy [Unknown]
  - Pleural effusion [Unknown]
  - Pneumonia [Unknown]
  - Thrombocytopenia [Unknown]
  - Lymphopenia [Unknown]
  - Hyponatraemia [Unknown]
  - Neuropathy peripheral [Unknown]
  - Influenza like illness [Unknown]
  - Amylase increased [Unknown]
  - Lipase increased [Unknown]
  - Pain in extremity [Unknown]
  - Pancreatitis [Unknown]
  - Hypertriglyceridaemia [Unknown]
  - Atrial fibrillation [Unknown]
  - Nausea [Unknown]
  - Pain [Unknown]
  - Vomiting [Unknown]
  - Diarrhoea [Unknown]
  - Bundle branch block right [Unknown]
  - Respiratory failure [Fatal]
  - Skin infection [Unknown]
  - Restlessness [Unknown]
